FAERS Safety Report 25163853 (Version 1)
Quarter: 2025Q2

REPORT INFORMATION
  Report Type: Spontaneous
  Country: GB (occurrence: GB)
  Receive Date: 20250405
  Receipt Date: 20250405
  Transmission Date: 20250716
  Serious: Yes (Other)
  Sender: AUROBINDO
  Company Number: GB-MHRA-MED-202503212119254440-YPWHT

PATIENT
  Age: 54 Year
  Sex: Female

DRUGS (3)
  1. ACETAMINOPHEN [Suspect]
     Active Substance: ACETAMINOPHEN
     Indication: Product used for unknown indication
     Route: 065
  2. DEXAMETHASONE\NEOMYCIN SULFATE [Suspect]
     Active Substance: DEXAMETHASONE\NEOMYCIN SULFATE
     Indication: Ear pain
     Route: 065
     Dates: start: 20250305
  3. IBUPROFEN [Concomitant]
     Active Substance: IBUPROFEN
     Indication: Ear pain
     Route: 065

REACTIONS (4)
  - Vestibular migraine [Unknown]
  - Vision blurred [Not Recovered/Not Resolved]
  - Ear pain [Unknown]
  - Pain [Unknown]

NARRATIVE: CASE EVENT DATE: 20250310
